FAERS Safety Report 21340458 (Version 1)
Quarter: 2022Q3

REPORT INFORMATION
  Report Type: Spontaneous
  Country: US (occurrence: None)
  Receive Date: 20220915
  Receipt Date: 20220915
  Transmission Date: 20221027
  Serious: No
  Sender: FDA-Public Use
  Company Number: None

PATIENT
  Age: 59 Year
  Sex: Female

DRUGS (3)
  1. OLUMIANT [Suspect]
     Active Substance: BARICITINIB
     Indication: Alopecia areata
     Dosage: FREQUENCY : DAILY;?
     Route: 048
     Dates: start: 202209
  2. OLUMIANT [Suspect]
     Active Substance: BARICITINIB
     Indication: Alopecia
  3. OLUMIANT [Suspect]
     Active Substance: BARICITINIB
     Indication: Alopecia areata

REACTIONS (1)
  - Bronchitis [None]
